FAERS Safety Report 25169945 (Version 1)
Quarter: 2025Q2

REPORT INFORMATION
  Report Type: Spontaneous
  Country: US (occurrence: US)
  Receive Date: 20250407
  Receipt Date: 20250407
  Transmission Date: 20250717
  Serious: Yes (Other)
  Sender: MERCK SHARP AND DOHME
  Company Number: US-009507513-2271841

PATIENT
  Sex: Female

DRUGS (3)
  1. JANUVIA [Suspect]
     Active Substance: SITAGLIPTIN PHOSPHATE
     Indication: Type 2 diabetes mellitus
     Dosage: 100MG 1 TABLET ONCE DAILY, IN THE MORNING
     Route: 048
     Dates: start: 20240920, end: 20250314
  2. METFORMIN [Concomitant]
     Active Substance: METFORMIN HYDROCHLORIDE
     Route: 065
  3. GLIMEPIRIDE [Concomitant]
     Active Substance: GLIMEPIRIDE
     Dosage: 4 MG 1 X DAILY
     Route: 065

REACTIONS (6)
  - Renal impairment [Not Recovered/Not Resolved]
  - Frustration tolerance decreased [Unknown]
  - Brain fog [Recovering/Resolving]
  - Blood glucose abnormal [Recovering/Resolving]
  - Fatigue [Recovering/Resolving]
  - Drug effect less than expected [Unknown]

NARRATIVE: CASE EVENT DATE: 20240101
